FAERS Safety Report 10266516 (Version 6)
Quarter: 2017Q1

REPORT INFORMATION
  Report Type: Report from Study
  Country: None (occurrence: BR)
  Receive Date: 20140629
  Receipt Date: 20170228
  Transmission Date: 20170428
  Serious: Yes (Other)
  Sender: FDA-Public Use
  Company Number: BR-ABBVIE-14P-020-1252497-00

PATIENT
  Sex: Female
  Weight: 65 kg

DRUGS (17)
  1. HUMIRA [Suspect]
     Active Substance: ADALIMUMAB
     Route: 058
     Dates: end: 20170105
  2. METHOTREXATE. [Suspect]
     Active Substance: METHOTREXATE
     Indication: ARTHRITIS
     Route: 048
     Dates: start: 2002
  3. VITAMIN D3 [Concomitant]
     Active Substance: CHOLECALCIFEROL
     Indication: BONE DISORDER
     Route: 048
     Dates: start: 2002
  4. ALENDRONATE (OSTEOFORM) [Concomitant]
     Indication: OSTEOPENIA
     Route: 048
  5. DICLOFENAC SODIUM. [Concomitant]
     Active Substance: DICLOFENAC SODIUM
     Indication: PAIN
     Dosage: SPORADICALLY
     Route: 048
  6. CALCIUM [Concomitant]
     Active Substance: CALCIUM
     Indication: BONE DISORDER
     Route: 048
     Dates: start: 2002
  7. HYDROXYCHLOROQUINE SULFATE (REUQUINOL) [Concomitant]
     Indication: ARTHRITIS
     Dosage: HALF TABLET DAILY
     Route: 048
     Dates: start: 2002
  8. SIGMATRIOL [Concomitant]
     Active Substance: CALCITRIOL
     Indication: BONE DISORDER
     Route: 048
     Dates: start: 2010
  9. VITAMIN D3 [Concomitant]
     Active Substance: CHOLECALCIFEROL
     Route: 048
     Dates: start: 2014
  10. HUMIRA [Suspect]
     Active Substance: ADALIMUMAB
     Route: 058
  11. HUMIRA [Suspect]
     Active Substance: ADALIMUMAB
     Route: 058
  12. ARAVA [Concomitant]
     Active Substance: LEFLUNOMIDE
     Indication: ARTHRITIS
     Route: 048
     Dates: start: 2004
  13. AMOXICILLIN CLAVULANIC ACID [Concomitant]
     Active Substance: AMOXICILLIN\CLAVULANIC ACID
     Indication: PRODUCT USED FOR UNKNOWN INDICATION
     Route: 048
  14. ENALAPRIL [Concomitant]
     Active Substance: ENALAPRIL
     Indication: BLOOD PRESSURE ABNORMAL
  15. SIMVASTATIN. [Concomitant]
     Active Substance: SIMVASTATIN
     Indication: BLOOD CHOLESTEROL ABNORMAL
     Route: 048
     Dates: start: 2012
  16. HUMIRA [Suspect]
     Active Substance: ADALIMUMAB
     Indication: RHEUMATOID ARTHRITIS
     Route: 058
     Dates: start: 20080101
  17. ENALAPRIL [Concomitant]
     Active Substance: ENALAPRIL
     Indication: HYPERTENSION
     Route: 048
     Dates: start: 2010

REACTIONS (18)
  - Osteoarthritis [Recovered/Resolved]
  - Femur fracture [Recovering/Resolving]
  - Procedural complication [Unknown]
  - Bacterial infection [Unknown]
  - Device breakage [Recovered/Resolved]
  - Bone graft [Not Recovered/Not Resolved]
  - Bone pain [Recovered/Resolved]
  - Femur fracture [Not Recovered/Not Resolved]
  - Internal fixation of fracture [Unknown]
  - Lower limb fracture [Recovered/Resolved]
  - Sinusitis [Recovered/Resolved]
  - Blood cholesterol abnormal [Unknown]
  - Stress [Recovered/Resolved]
  - Secretion discharge [Not Recovered/Not Resolved]
  - Device loosening [Unknown]
  - Immunodeficiency [Recovered/Resolved]
  - Arthropathy [Recovered/Resolved]
  - Femur fracture [Recovered/Resolved]

NARRATIVE: CASE EVENT DATE: 2008
